FAERS Safety Report 5346781-4 (Version None)
Quarter: 2007Q2

REPORT INFORMATION
  Report Type: 
  Country: None (occurrence: None)
  Receive Date: 20070605
  Receipt Date: 20070525
  Transmission Date: 20071010
  Serious: Yes (Hospitalization, Other)
  Sender: FDA-Public Use
  Company Number: GB-PFIZER INC-2007043644

PATIENT
  Age: 88 Year
  Sex: Female
  Weight: 75 kg

DRUGS (6)
  1. ATORVASTATIN [Suspect]
     Route: 048
     Dates: start: 20070201, end: 20070416
  2. AMIODARONE HCL [Concomitant]
     Indication: ATRIAL FIBRILLATION
  3. ACETYLSALICYLIC ACID SRT [Concomitant]
  4. FRUSEMIDE [Concomitant]
     Indication: DYSPEPSIA
  5. LEVOTHYROXINE SODIUM [Concomitant]
     Indication: HYPOTHYROIDISM
  6. WARFARIN SODIUM [Concomitant]
     Route: 048

REACTIONS (1)
  - DISORIENTATION [None]
